FAERS Safety Report 18173488 (Version 2)
Quarter: 2021Q1

REPORT INFORMATION
  Report Type: Spontaneous
  Country: US (occurrence: US)
  Receive Date: 20200819
  Receipt Date: 20210129
  Transmission Date: 20210419
  Serious: Yes (Other)
  Sender: FDA-Public Use
  Company Number: US-PURDUE-USA-2020-0161695

PATIENT
  Sex: Male

DRUGS (3)
  1. DILAUDID [Suspect]
     Active Substance: HYDROMORPHONE HYDROCHLORIDE
     Indication: PAIN
     Dosage: UNK
     Route: 048
  2. OXYCONTIN [Suspect]
     Active Substance: OXYCODONE HYDROCHLORIDE
     Indication: PAIN
     Dosage: UNK
     Route: 048
     Dates: start: 19980714, end: 20020202
  3. HYDROCODONE BITARTRATE (SIMILAR TO NDA 206627) [Suspect]
     Active Substance: HYDROCODONE BITARTRATE
     Indication: PAIN
     Dosage: UNK
     Route: 048

REACTIONS (19)
  - Withdrawal syndrome [Unknown]
  - Muscle disorder [Unknown]
  - Nerve block [Unknown]
  - Sleep disorder [Unknown]
  - Cartilage injury [Unknown]
  - Drug dependence [Unknown]
  - Joint debridement [Unknown]
  - Rotator cuff syndrome [Unknown]
  - Osteoarthritis [Unknown]
  - Road traffic accident [Unknown]
  - Lumbar radiculopathy [Unknown]
  - Synovitis [Unknown]
  - Knee arthroplasty [Unknown]
  - Intervertebral disc degeneration [Unknown]
  - Tendonitis [Unknown]
  - Pain [Unknown]
  - Overdose [Unknown]
  - Ankle fracture [Unknown]
  - Bursitis [Unknown]

NARRATIVE: CASE EVENT DATE: 19980817
